FAERS Safety Report 4577688-8 (Version None)
Quarter: 2005Q1

REPORT INFORMATION
  Report Type: 
  Country: None (occurrence: None)
  Receive Date: 20050210
  Receipt Date: 20050204
  Transmission Date: 20050727
  Serious: Yes (Hospitalization)
  Sender: FDA-Public Use
  Company Number: FR-MERCK-0502FRA00023

PATIENT
  Age: 70 Year
  Sex: Male
  Weight: 83 kg

DRUGS (12)
  1. ZOCOR [Suspect]
     Route: 048
     Dates: start: 19940601, end: 20041101
  2. ZOCOR [Suspect]
     Route: 048
     Dates: start: 20041101, end: 20041216
  3. ZOCOR [Suspect]
     Route: 048
     Dates: start: 20041217, end: 20041222
  4. CLOPIDOGREL BISULFATE [Suspect]
     Route: 048
     Dates: start: 20040815, end: 20041217
  5. ASPIRIN LYSINE [Concomitant]
     Route: 065
  6. BISOPROLOL [Concomitant]
     Route: 065
     Dates: start: 20040815
  7. FUROSEMIDE [Concomitant]
     Route: 048
     Dates: start: 20040815
  8. RAMIPRIL [Concomitant]
     Route: 048
     Dates: start: 20040815, end: 20041101
  9. RAMIPRIL [Concomitant]
     Route: 048
     Dates: start: 20041101, end: 20041101
  10. RAMIPRIL [Concomitant]
     Route: 048
     Dates: start: 20041101
  11. OXAZEPAM [Concomitant]
     Route: 048
  12. LORAZEPAM [Concomitant]
     Route: 065

REACTIONS (4)
  - ASTHENIA [None]
  - HEADACHE [None]
  - PARAESTHESIA [None]
  - WEIGHT DECREASED [None]
